FAERS Safety Report 8444973-9 (Version None)
Quarter: 2012Q2

REPORT INFORMATION
  Report Type: 
  Country: None (occurrence: None)
  Receive Date: 20120618
  Receipt Date: 20120607
  Transmission Date: 20120825
  Serious: Yes (Hospitalization)
  Sender: FDA-Public Use
  Company Number: US-ELI_LILLY_AND_COMPANY-US201206003315

PATIENT
  Sex: Female

DRUGS (12)
  1. LISINOPRIL [Concomitant]
     Dosage: UNK, UNKNOWN
  2. LEVOTHYROXINE SODIUM [Concomitant]
     Dosage: UNK, UNKNOWN
  3. OMEPRAZOLE [Concomitant]
     Dosage: UNK, UNKNOWN
  4. ALBUTEROL [Concomitant]
     Dosage: UNK, UNKNOWN
  5. REQUIP [Concomitant]
     Dosage: UNK, UNKNOWN
  6. GABAPENTIN [Concomitant]
     Dosage: UNK, UNKNOWN
  7. TRAZODONE HCL [Concomitant]
     Dosage: UNK, UNKNOWN
  8. FORTEO [Suspect]
     Indication: OSTEOPOROSIS
     Dosage: 20 U, QD
     Dates: start: 20120401
  9. PRAVASTATIN [Concomitant]
     Dosage: UNK, UNKNOWN
  10. OXYCONTIN [Concomitant]
     Dosage: UNK, UNKNOWN
  11. HYDROCHLOROTHIAZIDE [Concomitant]
     Dosage: UNK, UNKNOWN
  12. OXYCODONE HCL [Concomitant]
     Dosage: UNK, UNKNOWN

REACTIONS (9)
  - DEPRESSION [None]
  - TREMOR [None]
  - HYPOTHYROIDISM [None]
  - CONDITION AGGRAVATED [None]
  - VERTIGO [None]
  - DIABETES MELLITUS [None]
  - FALL [None]
  - VISUAL IMPAIRMENT [None]
  - DRUG DOSE OMISSION [None]
